FAERS Safety Report 24073107 (Version 1)
Quarter: 2024Q3

REPORT INFORMATION
  Report Type: Spontaneous
  Country: GB (occurrence: GB)
  Receive Date: 20240710
  Receipt Date: 20240710
  Transmission Date: 20241016
  Serious: Yes (Hospitalization, Disabling, Other)
  Sender: PFIZER
  Company Number: None

PATIENT
  Sex: Male
  Weight: 111 kg

DRUGS (5)
  1. SPIRONOLACTONE [Suspect]
     Active Substance: SPIRONOLACTONE
     Indication: Coronary artery bypass
     Dosage: UNK
     Dates: start: 202404, end: 2024
  2. SPIRONOLACTONE [Suspect]
     Active Substance: SPIRONOLACTONE
     Indication: Cardiac failure
  3. TEICOPLANIN [Suspect]
     Active Substance: TEICOPLANIN
     Indication: Intraoperative care
     Dosage: 1000 MG, SINGLE
     Dates: start: 20240411, end: 20240411
  4. FUROSEMIDE [Suspect]
     Active Substance: FUROSEMIDE
     Indication: Coronary artery bypass
     Dosage: UNK
     Dates: start: 202404, end: 20240501
  5. FUROSEMIDE [Suspect]
     Active Substance: FUROSEMIDE
     Indication: Cardiac failure

REACTIONS (2)
  - Rash vesicular [Recovering/Resolving]
  - Peripheral swelling [Unknown]

NARRATIVE: CASE EVENT DATE: 20240101
